FAERS Safety Report 19980321 (Version 1)
Quarter: 2021Q4

REPORT INFORMATION
  Report Type: Report from Study
  Country: DE (occurrence: DE)
  Receive Date: 20211021
  Receipt Date: 20211021
  Transmission Date: 20220304
  Serious: Yes (Hospitalization)
  Sender: FDA-Public Use
  Company Number: DE-ROCHE-2756877

PATIENT
  Age: 60 Year
  Sex: Male
  Weight: 97 kg

DRUGS (18)
  1. CARBOPLATIN [Suspect]
     Active Substance: CARBOPLATIN
     Indication: Non-small cell lung cancer
     Dosage: UNK (6 MG/MIN ML CYCLICAL 04/JAN/2021 RECEIVED MOST RECENT DOSE)
     Route: 042
     Dates: start: 20201214
  2. PACLITAXEL [Suspect]
     Active Substance: PACLITAXEL
     Indication: Non-small cell lung cancer
     Dosage: 80 MILLIGRAM/SQ. METER (CYCLICAL 19/JAN/2021, RECEIVED MOST RECENT DOSE)
     Route: 042
     Dates: start: 20201214
  3. ATEZOLIZUMAB [Suspect]
     Active Substance: ATEZOLIZUMAB
     Indication: Non-small cell lung cancer
     Dosage: 1200 MILLIGRAM (CYCLICAL 04/JAN/2021, RECEIVED MOST RECENT DOSE)
     Route: 041
     Dates: start: 20201214
  4. ATORVASTATIN [Concomitant]
     Active Substance: ATORVASTATIN
     Dosage: 10 MILLIGRAM, QD
     Route: 048
  5. FASTURTEC [Concomitant]
     Active Substance: RASBURICASE
     Dosage: 7.5 MILLIGRAM, QD
     Route: 042
     Dates: start: 20210120, end: 20210120
  6. INNOHEP [Concomitant]
     Active Substance: TINZAPARIN SODIUM
     Dosage: 0.9 MILLILITER, QD
     Route: 042
     Dates: start: 20210118, end: 20210118
  7. MOVICOL [Concomitant]
     Active Substance: POLYETHYLENE GLYCOL 3350\POTASSIUM CHLORIDE\SODIUM BICARBONATE\SODIUM CHLORIDE
     Indication: Constipation
     Dosage: 125 GRAM, QD
     Route: 048
  8. ALLOPURINOL [Concomitant]
     Active Substance: ALLOPURINOL
     Dosage: 300 MILLIGRAM, QD
     Route: 048
     Dates: start: 20210120, end: 20210120
  9. NALOXONE HYDROCHLORIDE\TILIDINE HYDROCHLORIDE [Concomitant]
     Active Substance: NALOXONE HYDROCHLORIDE\TILIDINE HYDROCHLORIDE
     Indication: Tumour pain
     Dosage: 8 MILLIGRAM
     Route: 048
     Dates: start: 20201120
  10. PREDNISOLONE [Concomitant]
     Active Substance: PREDNISOLONE
     Dosage: 100 MILLIGRAM, QD
     Route: 042
     Dates: start: 20210121, end: 20210121
  11. VALSARTAN [Concomitant]
     Active Substance: VALSARTAN
     Indication: Hypertension
     Dosage: 25 MILLIGRAM, QD
     Route: 048
  12. PAMIDRONATE [Concomitant]
     Active Substance: PAMIDRONATE DISODIUM
     Dosage: 90 MILLIGRAM, MONTHLY
     Route: 042
     Dates: start: 20201218, end: 20210115
  13. TORSEMIDE [Concomitant]
     Active Substance: TORSEMIDE
     Indication: Oedema
     Dosage: 10 MILLIGRAM, QD
     Route: 048
  14. ENOXAPARIN [Concomitant]
     Active Substance: ENOXAPARIN
     Indication: Hypertension
     Dosage: 4000 INTERNATIONAL UNIT, QD
     Route: 058
  15. POTASSIUM CITRATE [Concomitant]
     Active Substance: POTASSIUM CITRATE
     Indication: Diabetes mellitus
     Dosage: 260 MILLIGRAM
     Route: 048
  16. METOPROLOL [Concomitant]
     Active Substance: METOPROLOL
     Indication: Hypertension
     Dosage: 200 MILLIGRAM, QD
     Route: 048
  17. METFORMIN [Concomitant]
     Active Substance: METFORMIN HYDROCHLORIDE
     Indication: Diabetes mellitus
     Dosage: 500 MILLIGRAM
     Route: 048
  18. AMLODIPINE BESYLATE [Concomitant]
     Active Substance: AMLODIPINE BESYLATE
     Indication: Hypertension
     Dosage: 10 MILLIGRAM
     Route: 048

REACTIONS (3)
  - Renal failure [Not Recovered/Not Resolved]
  - Diarrhoea [Recovered/Resolved]
  - Blood uric acid increased [Recovered/Resolved]

NARRATIVE: CASE EVENT DATE: 20210115
